FAERS Safety Report 8044691-5 (Version None)
Quarter: 2012Q1

REPORT INFORMATION
  Report Type: 
  Country: None (occurrence: None)
  Receive Date: 20120113
  Receipt Date: 20120104
  Transmission Date: 20120608
  Serious: Yes (Life-Threatening, Hospitalization)
  Sender: FDA-Public Use
  Company Number: FR-GILEAD-2008-0017571

PATIENT
  Sex: Male

DRUGS (13)
  1. PRIMPERAN TAB [Concomitant]
  2. ALPRAZOLAM [Concomitant]
     Dosage: 0.25 UNKNOWN, UNK
     Dates: start: 20080129
  3. BION 3 [Concomitant]
     Dosage: UNK
     Dates: start: 20080331
  4. ASPIRIN [Concomitant]
  5. TRUVADA [Suspect]
     Indication: HIV INFECTION
     Dosage: UNK
     Route: 048
     Dates: start: 20080201, end: 20080306
  6. ALPRAZOLAM [Concomitant]
     Dosage: 0.25 UNKNOWN, UNK
     Dates: start: 20080206
  7. ACETAMINOPHEN [Concomitant]
  8. PPI [Concomitant]
  9. ACETAMINOPHEN [Concomitant]
     Dosage: 1 G, UNK
     Dates: start: 20080121
  10. DAKTARIN                           /00310802/ [Concomitant]
     Dosage: UNK
     Dates: start: 20080331
  11. KALETRA [Suspect]
     Indication: HIV INFECTION
     Dosage: UNK
     Route: 048
     Dates: start: 20080201, end: 20080306
  12. MAALOX                             /00082501/ [Concomitant]
  13. GAVISCON                           /00237601/ [Concomitant]

REACTIONS (1)
  - STEVENS-JOHNSON SYNDROME [None]
